FAERS Safety Report 15188659 (Version 1)
Quarter: 2018Q3

REPORT INFORMATION
  Report Type: Spontaneous
  Country: US (occurrence: US)
  Receive Date: 20180724
  Receipt Date: 20180724
  Transmission Date: 20181010
  Serious: No
  Sender: FDA-Public Use
  Company Number: US-PFIZER INC-2018295364

PATIENT
  Sex: Male

DRUGS (3)
  1. VIAGRA [Interacting]
     Active Substance: SILDENAFIL CITRATE
     Dosage: 2 DF, UNK
  2. VIAGRA [Suspect]
     Active Substance: SILDENAFIL CITRATE
     Dosage: 1 DF, UNK
  3. PALIPERIDONE. [Interacting]
     Active Substance: PALIPERIDONE
     Dosage: UNK

REACTIONS (3)
  - Drug interaction [Unknown]
  - Intentional product misuse [Unknown]
  - Drug ineffective [Unknown]
